FAERS Safety Report 17141814 (Version 1)
Quarter: 2019Q4

REPORT INFORMATION
  Report Type: Spontaneous
  Country: IT (occurrence: IT)
  Receive Date: 20191211
  Receipt Date: 20191211
  Transmission Date: 20200122
  Serious: Yes (Other)
  Sender: FDA-Public Use
  Company Number: IT-JNJFOC-20180404726

PATIENT

DRUGS (6)
  1. INFLIXIMAB, RECOMBINANT [Suspect]
     Active Substance: INFLIXIMAB
     Indication: CROHN^S DISEASE
  2. AZATHIOPRINE. [Suspect]
     Active Substance: AZATHIOPRINE
     Indication: CROHN^S DISEASE
  3. ADALIMUMAB [Suspect]
     Active Substance: ADALIMUMAB
     Indication: COLITIS ULCERATIVE
  4. AZATHIOPRINE. [Suspect]
     Active Substance: AZATHIOPRINE
     Indication: COLITIS ULCERATIVE
  5. ADALIMUMAB [Suspect]
     Active Substance: ADALIMUMAB
     Indication: CROHN^S DISEASE
     Dosage: 160/80 MG AT WEEK 0 AND AT WEEK 2, THEN 40 MG EVERY 2 WEEKS
     Route: 065
  6. INFLIXIMAB, RECOMBINANT [Suspect]
     Active Substance: INFLIXIMAB
     Indication: COLITIS ULCERATIVE
     Route: 042

REACTIONS (12)
  - Infection [Unknown]
  - Viral infection [Unknown]
  - Fungal infection [Unknown]
  - Skin reaction [Unknown]
  - Therapeutic response decreased [Unknown]
  - Neoplasm of appendix [Unknown]
  - Hepatocellular carcinoma [Unknown]
  - Infusion related reaction [Unknown]
  - Nervous system disorder [Unknown]
  - Liver function test abnormal [Unknown]
  - Tuberculosis [Unknown]
  - Bacterial infection [Unknown]
